FAERS Safety Report 5611739-4 (Version None)
Quarter: 2008Q1

REPORT INFORMATION
  Report Type: 
  Country: None (occurrence: None)
  Receive Date: 20080204
  Receipt Date: 20070108
  Transmission Date: 20080703
  Serious: No
  Sender: FDA-Public Use
  Company Number: US-BAYER-200710073BCC

PATIENT
  Age: 53 Year
  Sex: Female
  Weight: 50 kg

DRUGS (3)
  1. ALEVE COLD AND SINUS [Suspect]
     Indication: NASOPHARYNGITIS
     Dosage: AS USED: 220/120 MG  UNIT DOSE: 220 MG
     Route: 048
     Dates: start: 20070107
  2. ALEVE COLD AND SINUS [Suspect]
     Dosage: AS USED: 220/110 MG  UNIT DOSE: 220 MG
     Route: 048
     Dates: start: 20070108
  3. KLONOPIN [Concomitant]

REACTIONS (4)
  - ASTHENIA [None]
  - DISORIENTATION [None]
  - DIZZINESS [None]
  - DRY SKIN [None]
